FAERS Safety Report 5343304-0 (Version None)
Quarter: 2007Q2

REPORT INFORMATION
  Report Type: 
  Country: None (occurrence: None)
  Receive Date: 20070502
  Receipt Date: 20060707
  Transmission Date: 20071010
  Serious: Yes (Life-Threatening, Hospitalization)
  Sender: FDA-Public Use
  Company Number: PHEH2006US08716

PATIENT
  Age: 67 Year
  Sex: Male
  Weight: 63.9 kg

DRUGS (4)
  1. LOTREL [Suspect]
     Indication: HYPERTENSION
     Dosage: 10/20 MG, QD, ORAL
     Route: 048
     Dates: start: 20010622, end: 20051110
  2. SYNTHROID [Concomitant]
  3. VIAGRA [Concomitant]
  4. EFFEXOR [Concomitant]

REACTIONS (7)
  - ANGIOEDEMA [None]
  - DRY MOUTH [None]
  - DYSPNOEA [None]
  - OROPHARYNGEAL SWELLING [None]
  - PARAESTHESIA ORAL [None]
  - SWOLLEN TONGUE [None]
  - WHITE BLOOD CELL COUNT INCREASED [None]
